FAERS Safety Report 6928049-5 (Version None)
Quarter: 2010Q3

REPORT INFORMATION
  Report Type: 
  Country: None (occurrence: None)
  Receive Date: 20100816
  Receipt Date: 20100816
  Transmission Date: 20110219
  Serious: No
  Sender: FDA-Public Use
  Company Number: None

PATIENT
  Age: 20 Year
  Sex: Female
  Weight: 106.5953 kg

DRUGS (1)
  1. FLUCONAZOLE [Suspect]
     Dosage: 150MG ONCE PO
     Route: 048
     Dates: start: 20000109, end: 20020302

REACTIONS (8)
  - DERMATITIS ALLERGIC [None]
  - DRUG ERUPTION [None]
  - LIBIDO DECREASED [None]
  - SCAR [None]
  - STEVENS-JOHNSON SYNDROME [None]
  - TOXIC EPIDERMAL NECROLYSIS [None]
  - VAGINAL DISCHARGE [None]
  - VULVOVAGINAL PRURITUS [None]
